FAERS Safety Report 13341325 (Version 1)
Quarter: 2017Q1

REPORT INFORMATION
  Report Type: Spontaneous
  Country: US (occurrence: US)
  Receive Date: 20170316
  Receipt Date: 20170316
  Transmission Date: 20170428
  Serious: No
  Sender: FDA-Public Use
  Company Number: US-GLAXOSMITHKLINE-US2017036181

PATIENT
  Sex: Female

DRUGS (1)
  1. EXCEDRIN MIGRAINE [Suspect]
     Active Substance: ACETAMINOPHEN\ASPIRIN\CAFFEINE
     Indication: MIGRAINE
     Dosage: UNK

REACTIONS (6)
  - Feeling drunk [Unknown]
  - Memory impairment [Unknown]
  - Anxiety [Unknown]
  - Feeling jittery [Unknown]
  - Somnolence [Unknown]
  - Wrong technique in product usage process [Unknown]
